FAERS Safety Report 4903556-5 (Version None)
Quarter: 2006Q1

REPORT INFORMATION
  Report Type: 
  Country: None (occurrence: None)
  Receive Date: 20060208
  Receipt Date: 20060127
  Transmission Date: 20060701
  Serious: Yes (Death, Hospitalization)
  Sender: FDA-Public Use
  Company Number: US-JNJFOC-20060200095

PATIENT
  Sex: Female
  Weight: 68.95 kg

DRUGS (7)
  1. ULTRAM [Suspect]
     Route: 048
     Dates: start: 20040401
  2. ULTRAM [Suspect]
     Route: 048
     Dates: start: 20040401
  3. NEXIUM [Concomitant]
  4. KLOTRIX [Concomitant]
  5. TRAZADONE [Concomitant]
  6. NORVASC [Concomitant]
  7. IBUPROFEN [Concomitant]

REACTIONS (4)
  - ANOXIC ENCEPHALOPATHY [None]
  - POLYSUBSTANCE ABUSE [None]
  - RENAL FAILURE [None]
  - RESPIRATORY FAILURE [None]
